FAERS Safety Report 24282833 (Version 1)
Quarter: 2024Q3

REPORT INFORMATION
  Report Type: Spontaneous
  Country: US (occurrence: None)
  Receive Date: 20240903
  Receipt Date: 20240903
  Transmission Date: 20241016
  Serious: Yes (Other)
  Sender: Public
  Company Number: None

PATIENT
  Age: 66 Year
  Sex: Male
  Weight: 107.6 kg

DRUGS (2)
  1. ABIRATERONE. [Suspect]
     Active Substance: ABIRATERONE ACETATE
     Indication: Prostate cancer
     Dosage: FREQUENCY : DAILY;?
     Route: 048
     Dates: start: 20240714, end: 20240717
  2. PREDNISONE [Suspect]
     Active Substance: PREDNISONE
     Dates: start: 20240614, end: 20240617

REACTIONS (5)
  - Nausea [None]
  - Diarrhoea [None]
  - Tremor [None]
  - Pollakiuria [None]
  - Dizziness [None]

NARRATIVE: CASE EVENT DATE: 20240617
